FAERS Safety Report 8341759-0 (Version None)
Quarter: 2012Q2

REPORT INFORMATION
  Report Type: 
  Country: None (occurrence: None)
  Receive Date: 20120507
  Receipt Date: 20120501
  Transmission Date: 20120825
  Serious: Yes (Other)
  Sender: FDA-Public Use
  Company Number: US-CELGENEUS-163-21880-12050308

PATIENT
  Sex: Female

DRUGS (4)
  1. REVLIMID [Suspect]
     Dosage: 10 MILLIGRAM
     Route: 048
     Dates: start: 20120405
  2. REVLIMID [Suspect]
     Indication: MULTIPLE MYELOMA
     Dosage: 10 MILLIGRAM
     Route: 048
     Dates: start: 20100806, end: 20100929
  3. TEKTURNA [Concomitant]
     Route: 065
  4. LASIX [Concomitant]
     Route: 065

REACTIONS (3)
  - CARDIAC DISORDER [None]
  - HERPES ZOSTER [None]
  - OEDEMA PERIPHERAL [None]
